FAERS Safety Report 10514124 (Version 1)
Quarter: 2014Q4

REPORT INFORMATION
  Report Type: Spontaneous
  Country: US (occurrence: US)
  Receive Date: 20141013
  Receipt Date: 20141013
  Transmission Date: 20150528
  Serious: Yes (Other)
  Sender: FDA-Public Use
  Company Number: US-BAYER-2014-148089

PATIENT
  Age: 74 Year
  Sex: Male

DRUGS (2)
  1. ZYTIGA [Concomitant]
     Active Substance: ABIRATERONE ACETATE
  2. XOFIGO [Suspect]
     Active Substance: RADIUM RA-223 DICHLORIDE
     Dosage: UNK
     Dates: start: 20140911

REACTIONS (4)
  - Dyspnoea [None]
  - Fatigue [None]
  - Asthenia [None]
  - Decreased appetite [None]

NARRATIVE: CASE EVENT DATE: 20140911
